FAERS Safety Report 7134425-0 (Version None)
Quarter: 2010Q4

REPORT INFORMATION
  Report Type: 
  Country: None (occurrence: None)
  Receive Date: 20101203
  Receipt Date: 20101129
  Transmission Date: 20110411
  Serious: Yes (Hospitalization)
  Sender: FDA-Public Use
  Company Number: PHHY2010FI81209

PATIENT
  Sex: Male

DRUGS (1)
  1. LESCOL [Suspect]
     Indication: BLOOD CHOLESTEROL DECREASED
     Dosage: 80 MG
     Route: 048
     Dates: start: 20050101, end: 20101026

REACTIONS (2)
  - CHRONIC LYMPHOCYTIC LEUKAEMIA [None]
  - SYSTEMIC LUPUS ERYTHEMATOSUS [None]
